FAERS Safety Report 8415995-9 (Version None)
Quarter: 2012Q2

REPORT INFORMATION
  Report Type: 
  Country: None (occurrence: None)
  Receive Date: 20120606
  Receipt Date: 20120313
  Transmission Date: 20120825
  Serious: Yes (Hospitalization)
  Sender: FDA-Public Use
  Company Number: US-PFIZER INC-2012072161

PATIENT
  Age: 13 Year
  Sex: Female

DRUGS (1)
  1. MOTRIN [Suspect]
     Indication: SINUSITIS
     Dosage: UNK
     Route: 065

REACTIONS (1)
  - RENAL FAILURE [None]
